FAERS Safety Report 18810737 (Version 2)
Quarter: 2021Q1

REPORT INFORMATION
  Report Type: Report from Study
  Country: KR (occurrence: KR)
  Receive Date: 20210129
  Receipt Date: 20210203
  Transmission Date: 20210419
  Serious: Yes (Hospitalization, Other)
  Sender: FDA-Public Use
  Company Number: KR-AMGEN-KORNI2021013823

PATIENT
  Age: 78 Year
  Sex: Female
  Weight: 52 kg

DRUGS (9)
  1. TYLENOL [Concomitant]
     Active Substance: ACETAMINOPHEN
     Dosage: 1 UNK
     Dates: start: 20201004, end: 20201004
  2. LYRICA [Concomitant]
     Active Substance: PREGABALIN
     Dosage: 150 MILLIGRAM
     Dates: start: 20181017
  3. DICAMAX [Concomitant]
     Dosage: 1 UNK
     Dates: start: 20200208
  4. ULTRACET ER SEMI [Concomitant]
     Dosage: 1 UNK
     Dates: start: 20200129
  5. DEXAMETHASONE. [Concomitant]
     Active Substance: DEXAMETHASONE
     Indication: PLASMA CELL MYELOMA
     Dosage: 20 MILLIGRAM
     Dates: start: 20200925
  6. CARFILZOMIB [Suspect]
     Active Substance: CARFILZOMIB
     Indication: PLASMA CELL MYELOMA
     Dosage: 80 MILLIGRAM
     Route: 042
     Dates: start: 20200925
  7. ACYCLOVIR [ACICLOVIR] [Concomitant]
     Active Substance: ACYCLOVIR
     Dosage: 200 MILLIGRAM
     Dates: start: 20200925
  8. CODAEWON FORTE [Concomitant]
     Dosage: 20 MILLILITER
     Dates: start: 20201005, end: 20201007
  9. ENDIS [Concomitant]
     Dosage: 300 MILLIGRAM
     Dates: start: 20201005, end: 20201007

REACTIONS (2)
  - Device related infection [Recovered/Resolved]
  - Neutropenia [Recovered/Resolved]

NARRATIVE: CASE EVENT DATE: 20201008
